FAERS Safety Report 16004510 (Version 1)
Quarter: 2019Q1

REPORT INFORMATION
  Report Type: Spontaneous
  Country: US (occurrence: US)
  Receive Date: 20190225
  Receipt Date: 20190225
  Transmission Date: 20190418
  Serious: Yes (Other)
  Sender: FDA-Public Use
  Company Number: None

PATIENT
  Age: 39 Year
  Sex: Female
  Weight: 68.85 kg

DRUGS (1)
  1. CLONZEPAM [Suspect]
     Active Substance: CLONAZEPAM
     Indication: PANIC DISORDER
     Dosage: ?          QUANTITY:1 TABLET(S);?
     Route: 048

REACTIONS (6)
  - Product substitution issue [None]
  - Night sweats [None]
  - Nausea [None]
  - Panic reaction [None]
  - Drug ineffective [None]
  - Withdrawal syndrome [None]

NARRATIVE: CASE EVENT DATE: 20190215
